FAERS Safety Report 5035270-2 (Version None)
Quarter: 2006Q2

REPORT INFORMATION
  Report Type: 
  Country: None (occurrence: None)
  Receive Date: 20060627
  Receipt Date: 20060620
  Transmission Date: 20061013
  Serious: Yes (Hospitalization)
  Sender: FDA-Public Use
  Company Number: PHBS2006IT09338

PATIENT
  Age: 56 Year
  Sex: Female

DRUGS (3)
  1. TOLEP [Suspect]
     Indication: CONVULSION
     Dosage: 900 MG/D
     Route: 048
     Dates: start: 20060419
  2. ELOPRAM [Concomitant]
     Dosage: 20 MG/D
     Route: 048
  3. RIVOTRIL [Concomitant]
     Dosage: 4.5 MG/D
     Route: 048

REACTIONS (4)
  - ALANINE AMINOTRANSFERASE INCREASED [None]
  - ASPARTATE AMINOTRANSFERASE INCREASED [None]
  - GAMMA-GLUTAMYLTRANSFERASE INCREASED [None]
  - LIVER DISORDER [None]
